FAERS Safety Report 12374880 (Version 1)
Quarter: 2016Q2

REPORT INFORMATION
  Report Type: Spontaneous
  Country: US (occurrence: None)
  Receive Date: 20160516
  Receipt Date: 20160516
  Transmission Date: 20160815
  Serious: Yes (Disabling)
  Sender: FDA-Public Use
  Company Number: None

PATIENT
  Age: 67 Year
  Sex: Male
  Weight: 77.11 kg

DRUGS (8)
  1. VIGAMOX [Suspect]
     Active Substance: MOXIFLOXACIN HYDROCHLORIDE
     Indication: PREOPERATIVE CARE
     Dosage: 1 DROP(S) FOUR TIMES A DAY INTO THE EYE
     Route: 031
     Dates: start: 20160506, end: 20160507
  2. ATORVASTATIN [Concomitant]
     Active Substance: ATORVASTATIN
  3. TELMISARTAN. [Concomitant]
     Active Substance: TELMISARTAN
  4. VIGAMOX [Suspect]
     Active Substance: MOXIFLOXACIN HYDROCHLORIDE
     Indication: CATARACT OPERATION
     Dosage: 1 DROP(S) FOUR TIMES A DAY INTO THE EYE
     Route: 031
     Dates: start: 20160506, end: 20160507
  5. VIGAMOX [Suspect]
     Active Substance: MOXIFLOXACIN HYDROCHLORIDE
     Indication: PROPHYLAXIS
     Dosage: 1 DROP(S) FOUR TIMES A DAY INTO THE EYE
     Route: 031
     Dates: start: 20160506, end: 20160507
  6. TRAVATAN Z [Concomitant]
     Active Substance: TRAVOPROST
  7. FISH OIL [Concomitant]
     Active Substance: FISH OIL
  8. AZOPT [Concomitant]
     Active Substance: BRINZOLAMIDE

REACTIONS (2)
  - Tendon discomfort [None]
  - Pain [None]

NARRATIVE: CASE EVENT DATE: 20160507
